FAERS Safety Report 22661430 (Version 1)
Quarter: 2023Q2

REPORT INFORMATION
  Report Type: Spontaneous
  Country: SE (occurrence: SE)
  Receive Date: 20230630
  Receipt Date: 20230630
  Transmission Date: 20230722
  Serious: Yes (Hospitalization)
  Sender: FDA-Public Use
  Company Number: None

PATIENT
  Age: 91 Year
  Sex: Male

DRUGS (4)
  1. ATORVASTATIN [Suspect]
     Active Substance: ATORVASTATIN
     Indication: Product used for unknown indication
     Dosage: FOR ACTIVE INGREDIENT ATORVASTATIN THE STRENGTH IS 80 MILLIGRAM .FOR ACTIVE INGREDIENT ATORVASTATINK
     Route: 065
     Dates: end: 202303
  2. EDOXABAN TOSYLATE [Concomitant]
     Active Substance: EDOXABAN TOSYLATE
     Indication: Product used for unknown indication
     Route: 065
  3. METOPROLOL [Concomitant]
     Active Substance: METOPROLOL
     Indication: Product used for unknown indication
     Dosage: FOR ACTIVE INGREDIENT METOPROLOLSUCCINAT THE STRENGTH IS 23.75 MILLIGRAM .FOR ACTIVE INGREDIENT METO
     Route: 065
     Dates: end: 202303
  4. FERROUS SULFATE [Concomitant]
     Active Substance: FERROUS SULFATE
     Indication: Product used for unknown indication
     Route: 065
     Dates: end: 202303

REACTIONS (2)
  - Acute myocardial infarction [Recovering/Resolving]
  - Myalgia [Unknown]

NARRATIVE: CASE EVENT DATE: 20230304
